FAERS Safety Report 17584307 (Version 2)
Quarter: 2020Q3

REPORT INFORMATION
  Report Type: Report from Study
  Country: None (occurrence: US)
  Receive Date: 20200326
  Receipt Date: 20200708
  Transmission Date: 20201102
  Serious: Yes (Other)
  Sender: FDA-Public Use
  Company Number: US-ABBVIE-20P-163-3335690-00

PATIENT
  Sex: Male

DRUGS (2)
  1. IMBRUVICA [Suspect]
     Active Substance: IBRUTINIB
     Indication: LYMPHOCYTIC LEUKAEMIA
     Route: 048
     Dates: start: 20190829
  2. IMBRUVICA [Suspect]
     Active Substance: IBRUTINIB
     Route: 048

REACTIONS (8)
  - Diarrhoea [Unknown]
  - Pleurisy [Unknown]
  - Rhinorrhoea [Unknown]
  - Haemorrhagic diathesis [Unknown]
  - Contusion [Unknown]
  - Aortic dilatation [Unknown]
  - Onychoclasis [Unknown]
  - Heart valve incompetence [Unknown]
